FAERS Safety Report 26041202 (Version 2)
Quarter: 2025Q4

REPORT INFORMATION
  Report Type: Spontaneous
  Country: CA (occurrence: CA)
  Receive Date: 20251113
  Receipt Date: 20251114
  Transmission Date: 20260118
  Serious: No
  Sender: PFIZER
  Company Number: CA-PFIZER INC-202500220491

PATIENT
  Age: 46 Year
  Sex: Female

DRUGS (1)
  1. RUXIENCE [Suspect]
     Active Substance: RITUXIMAB-PVVR
     Indication: Granulomatosis with polyangiitis
     Dosage: 1000 MG, ONCE (2ND DOSE OF INDUCTION THERAPY)
     Route: 042
     Dates: start: 20250614, end: 20250614

REACTIONS (1)
  - Condition aggravated [Unknown]
